FAERS Safety Report 15954315 (Version 1)
Quarter: 2019Q1

REPORT INFORMATION
  Report Type: Spontaneous
  Country: IE (occurrence: IE)
  Receive Date: 20190212
  Receipt Date: 20190212
  Transmission Date: 20190417
  Serious: Yes (Hospitalization, Other)
  Sender: FDA-Public Use
  Company Number: GXKR2006IE03557

PATIENT
  Age: 18 Year
  Sex: Male
  Weight: 70 kg

DRUGS (2)
  1. IBUPROFEN. [Suspect]
     Active Substance: IBUPROFEN
     Dosage: 2800 MG, ONCE/SINGLE
     Route: 048
  2. IBUPROFEN. [Suspect]
     Active Substance: IBUPROFEN
     Indication: BACK PAIN
     Dosage: 1600 MG, QD
     Route: 048

REACTIONS (8)
  - Pancreatitis acute [Recovered/Resolved]
  - Intentional self-injury [Recovered/Resolved]
  - Abdominal pain upper [Recovered/Resolved]
  - Amylase increased [Recovered/Resolved]
  - Blood lactate dehydrogenase increased [Recovered/Resolved]
  - Drug abuse [Recovered/Resolved]
  - Intentional overdose [Recovered/Resolved]
  - White blood cell count increased [Recovered/Resolved]

NARRATIVE: CASE EVENT DATE: 20060101
